FAERS Safety Report 4454516-2 (Version None)
Quarter: 2004Q3

REPORT INFORMATION
  Report Type: 
  Country: None (occurrence: None)
  Receive Date: 20040917
  Receipt Date: 20040917
  Transmission Date: 20050211
  Serious: Yes (Other)
  Sender: FDA-Public Use
  Company Number: None

PATIENT
  Age: 20 Year
  Sex: Female
  Weight: 109.7 kg

DRUGS (10)
  1. LAMICTAL [Suspect]
     Indication: BIPOLAR DISORDER
     Dosage: 25MG PO BID
     Route: 048
     Dates: start: 20040910, end: 20040913
  2. LAMICTAL [Suspect]
     Dosage: 25MG PO QD
     Route: 048
     Dates: start: 20040904, end: 20040909
  3. FLUVOXAMINE [Concomitant]
  4. RISPERIDONE [Concomitant]
  5. HYDROXYCHLROQUINE [Concomitant]
  6. ARIPRAZOLE [Concomitant]
  7. QUETAPINE [Concomitant]
  8. PAROXETINE HCL [Concomitant]
  9. LANZOPRAZOL [Concomitant]
  10. LITHIUM CARBONATE [Concomitant]

REACTIONS (2)
  - PRURITUS [None]
  - RASH GENERALISED [None]
